FAERS Safety Report 8867545 (Version 1)
Quarter: 2012Q4

REPORT INFORMATION
  Report Type: 
  Country: US (occurrence: US)
  Receive Date: 20121025
  Receipt Date: 20121025
  Transmission Date: 20130627
  Serious: No
  Sender: FDA-Public Use
  Company Number: US-AMGEN-USASP2012017156

PATIENT
  Age: 56 Year
  Sex: Male
  Weight: 122.45 kg

DRUGS (17)
  1. ENBREL [Suspect]
     Indication: PRODUCT USED FOR UNKNOWN INDICATION
     Dosage: 50 mg, qwk
     Route: 058
  2. METHOTREXATE [Concomitant]
     Dosage: 2.5 mg, UNK
  3. JANUVIA [Concomitant]
     Dosage: 25 mg, UNK
  4. LEFLUNOMIDE [Concomitant]
     Dosage: 10 mg, UNK
  5. LANTUS [Concomitant]
     Dosage: 100 ml, UNK
  6. HYDROXYZINE HCL [Concomitant]
     Dosage: 25 mg, UNK
  7. GLYBURIDE [Concomitant]
     Dosage: 5 mg, UNK
  8. ALEVE [Concomitant]
     Dosage: 220 mg, UNK
  9. BENICAR [Concomitant]
     Dosage: 20 mg, UNK
  10. ISOSORB DINIT [Concomitant]
     Dosage: 2.5 mg, UNK
  11. TOPROL [Concomitant]
     Dosage: 50 mg, UNK
  12. FOLIC ACID [Concomitant]
     Dosage: 5 mg, UNK
  13. PLAQUENIL                          /00072602/ [Concomitant]
     Dosage: 200 mg, UNK
  14. SIMVASTATIN [Concomitant]
     Dosage: 20 mg, UNK
  15. CENTRUM SILVER                     /01292501/ [Concomitant]
     Dosage: UNK
  16. FISH OIL [Concomitant]
     Dosage: UNK
  17. VITAMIN C                          /00008001/ [Concomitant]
     Dosage: 500 mg, UNK

REACTIONS (1)
  - Influenza like illness [Unknown]
